FAERS Safety Report 14770716 (Version 1)
Quarter: 2018Q2

REPORT INFORMATION
  Report Type: Other
  Country: US (occurrence: US)
  Receive Date: 20180417
  Receipt Date: 20180417
  Transmission Date: 20180711
  Serious: Yes (Hospitalization, Other)
  Sender: FDA-Public Use
  Company Number: US-ALSI-201800283

PATIENT
  Age: 58 Year
  Sex: Female

DRUGS (1)
  1. OXYGEN. [Suspect]
     Active Substance: OXYGEN
     Indication: ACCIDENTAL EXPOSURE TO PRODUCT
     Route: 050
     Dates: start: 20180403, end: 20180403

REACTIONS (4)
  - Thermal burn [Unknown]
  - Accident [Unknown]
  - Accidental exposure to product [Unknown]
  - Burns second degree [Unknown]

NARRATIVE: CASE EVENT DATE: 20180403
